FAERS Safety Report 9994374 (Version 1)
Quarter: 2014Q1

REPORT INFORMATION
  Report Type: Spontaneous
  Country: US (occurrence: US)
  Receive Date: 20140311
  Receipt Date: 20140311
  Transmission Date: 20141002
  Serious: No
  Sender: FDA-Public Use
  Company Number: US-009507513-1403USA004153

PATIENT
  Sex: 0

DRUGS (8)
  1. SINGULAIR [Suspect]
     Dosage: 0.5 DF, QD
     Route: 048
  2. REGLAN [Suspect]
     Dosage: 0.5 DF, QID
  3. VICODIN [Suspect]
     Dosage: 5/501 1/2 4
  4. VALIUM [Suspect]
     Dosage: 0.5 DF, TID
  5. PROAIR (ALBUTEROL SULFATE) [Suspect]
     Dosage: 0.5 DF, BID
  6. DEPO-MEDROL [Concomitant]
     Dosage: 40 MG/ML 5 ML V
  7. CELEBREX [Concomitant]
     Dosage: 0.5 DF, QD
  8. PREMARIN [Concomitant]
     Dosage: 1 DF, QD

REACTIONS (1)
  - Drug hypersensitivity [Unknown]
